FAERS Safety Report 9458441 (Version 1)
Quarter: 2013Q3

REPORT INFORMATION
  Report Type: Spontaneous
  Country: US (occurrence: None)
  Receive Date: 20130813
  Receipt Date: 20130813
  Transmission Date: 20140515
  Serious: Yes (Disabling)
  Sender: FDA-Public Use
  Company Number: None

PATIENT
  Age: 50 Year
  Sex: Male
  Weight: 83.92 kg

DRUGS (1)
  1. LEVAQUIN [Suspect]
     Indication: PROSTATE INFECTION
     Route: 048
     Dates: start: 20130709, end: 20130714

REACTIONS (10)
  - Burning sensation [None]
  - Myalgia [None]
  - Muscular weakness [None]
  - Myalgia [None]
  - Decreased appetite [None]
  - Insomnia [None]
  - Weight decreased [None]
  - Myalgia [None]
  - Muscle spasms [None]
  - Tendon pain [None]
